FAERS Safety Report 13698419 (Version 2)
Quarter: 2017Q3

REPORT INFORMATION
  Report Type: Spontaneous
  Country: AU (occurrence: AU)
  Receive Date: 20170628
  Receipt Date: 20170712
  Transmission Date: 20171127
  Serious: Yes (Other)
  Sender: FDA-Public Use
  Company Number: AU-ASTRAZENECA-2017SE64608

PATIENT
  Age: 36 Year
  Sex: Female

DRUGS (8)
  1. EXEMESTANE. [Concomitant]
     Active Substance: EXEMESTANE
  2. LYNPARZA [Suspect]
     Active Substance: OLAPARIB
     Route: 048
  3. CARBOPLATIN. [Concomitant]
     Active Substance: CARBOPLATIN
  4. DENOSUMAB [Concomitant]
     Active Substance: DENOSUMAB
  5. NOLVADEX-D [Suspect]
     Active Substance: TAMOXIFEN CITRATE
     Dosage: DOSE AND FREQUENCY UNKNOWN
     Route: 048
  6. ABRAXANE [Concomitant]
     Active Substance: PACLITAXEL
  7. ZOLADEX [Suspect]
     Active Substance: GOSERELIN ACETATE
     Dosage: DOSE AND FREQUENCY UNKNOWN
     Route: 058
  8. EVEROLIMUS [Concomitant]
     Active Substance: EVEROLIMUS

REACTIONS (5)
  - Malignant neoplasm progression [Unknown]
  - Off label use [Unknown]
  - Metastases to liver [Unknown]
  - Metastases to bone [Unknown]
  - Metastases to lung [Unknown]

NARRATIVE: CASE EVENT DATE: 2014
